FAERS Safety Report 9728160 (Version 2)
Quarter: 2014Q4

REPORT INFORMATION
  Report Type: Spontaneous
  Country: GB (occurrence: None)
  Receive Date: 20131202
  Receipt Date: 20141103
  Transmission Date: 20150529
  Serious: Yes (Other)
  Sender: FDA-Public Use
  Company Number: 2013GR_BP006467

PATIENT
  Sex: Female

DRUGS (2)
  1. FLUOXETINE [Concomitant]
     Active Substance: FLUOXETINE\FLUOXETINE HYDROCHLORIDE
  2. FINASTERIDE. [Suspect]
     Active Substance: FINASTERIDE
     Indication: DEPRESSION
     Dosage: NR, UNKNOWN

REACTIONS (17)
  - Memory impairment [None]
  - Pain in extremity [None]
  - Drug ineffective for unapproved indication [None]
  - Skin irritation [None]
  - Pruritus [None]
  - Drug dispensing error [None]
  - Tenderness [None]
  - Mood swings [None]
  - Swollen tongue [None]
  - Product use issue [None]
  - Tongue disorder [None]
  - Hepatic pain [None]
  - Product label on wrong product [None]
  - Dizziness [None]
  - Lethargy [None]
  - Pain of skin [None]
  - Depression [None]

NARRATIVE: CASE EVENT DATE: 20130306
